FAERS Safety Report 20579614 (Version 4)
Quarter: 2022Q2

REPORT INFORMATION
  Report Type: Report from Study
  Country: GB (occurrence: GB)
  Receive Date: 20220310
  Receipt Date: 20220504
  Transmission Date: 20220720
  Serious: Yes (Hospitalization)
  Sender: FDA-Public Use
  Company Number: GB-EXELIXIS-XL18422049602

PATIENT
  Age: 56 Year
  Sex: Male
  Weight: 91.5 kg

DRUGS (21)
  1. CABOZANTINIB [Suspect]
     Active Substance: CABOZANTINIB
     Indication: Metastatic renal cell carcinoma
     Dosage: ON 15-SEP-2021, RECEVIED AT A DOSE OF 20 MG, QD?ON 12-APR-2022, BLINDED STUDY TREATMENT WAS RESUMED
     Route: 048
     Dates: start: 20201102
  2. IPILIMUMAB [Suspect]
     Active Substance: IPILIMUMAB
     Indication: Metastatic renal cell carcinoma
     Dosage: 4 DOSES?MOST RECENT DOSE OF IPILIMUMAB STUDY THERAPY RECEIVED  ON 22-FEB-2021
     Route: 042
     Dates: start: 20201102
  3. IPILIMUMAB [Suspect]
     Active Substance: IPILIMUMAB
  4. NIVOLUMAB\RELATLIMAB-RMBW [Suspect]
     Active Substance: NIVOLUMAB\RELATLIMAB-RMBW
  5. CANDESARTAN [Concomitant]
     Active Substance: CANDESARTAN
     Indication: Product used for unknown indication
     Dosage: UNK
     Route: 065
  6. CANDESARTAN [Concomitant]
     Active Substance: CANDESARTAN
  7. CANDESARTAN [Concomitant]
     Active Substance: CANDESARTAN
  8. CANDESARTAN [Concomitant]
     Active Substance: CANDESARTAN
  9. HYALURONIC ACID [Concomitant]
     Active Substance: HYALURONIC ACID
     Indication: Product used for unknown indication
     Dosage: UNK
     Route: 065
  10. HYALURONIC ACID [Concomitant]
     Active Substance: HYALURONIC ACID
  11. HYALURONIC ACID [Concomitant]
     Active Substance: HYALURONIC ACID
  12. HYALURONIC ACID [Concomitant]
     Active Substance: HYALURONIC ACID
  13. DERMACOOL [Concomitant]
     Indication: Product used for unknown indication
     Dosage: UNK
     Route: 065
  14. DERMACOOL [Concomitant]
  15. DERMACOOL [Concomitant]
  16. DERMACOOL [Concomitant]
  17. AVENA [Concomitant]
     Indication: Product used for unknown indication
     Dosage: UNK
     Route: 065
  18. AVENA [Concomitant]
  19. AVENA [Concomitant]
  20. AVENA [Concomitant]
  21. CAPHOSOL [CALCIUM CHLORIDE;SODIUM CHLORIDE;SODIUM PHOSPHATE DIBASIC;SO [Concomitant]
     Indication: Product used for unknown indication
     Dosage: UNK
     Route: 065

REACTIONS (1)
  - Joint effusion [Not Recovered/Not Resolved]

NARRATIVE: CASE EVENT DATE: 20220220
